FAERS Safety Report 8277293-6 (Version None)
Quarter: 2012Q2

REPORT INFORMATION
  Report Type: 
  Country: None (occurrence: None)
  Receive Date: 20120412
  Receipt Date: 20120404
  Transmission Date: 20120825
  Serious: Yes (Other)
  Sender: FDA-Public Use
  Company Number: MX-GLAXOSMITHKLINE-A0973248A

PATIENT
  Sex: Female

DRUGS (3)
  1. BISOPROLOL FUMARATE [Concomitant]
     Dates: start: 20110301
  2. PRAVASTATIN [Concomitant]
     Dates: start: 20090301
  3. PAROXETINE HCL [Suspect]
     Indication: DEPRESSION
     Dosage: 10MG PER DAY
     Route: 048
     Dates: start: 20111201, end: 20120301

REACTIONS (6)
  - NECK PAIN [None]
  - STRESS [None]
  - PAIN IN EXTREMITY [None]
  - GROIN PAIN [None]
  - BONE MARROW DISORDER [None]
  - RED BLOOD CELL COUNT DECREASED [None]
